FAERS Safety Report 15102714 (Version 2)
Quarter: 2018Q3

REPORT INFORMATION
  Report Type: Spontaneous
  Country: US (occurrence: US)
  Receive Date: 20180703
  Receipt Date: 20180724
  Transmission Date: 20181010
  Serious: No
  Sender: FDA-Public Use
  Company Number: US-SA-2018SA178066

PATIENT
  Sex: Male

DRUGS (20)
  1. MONTELUKAST [Concomitant]
     Active Substance: MONTELUKAST SODIUM
  2. DUPIXENT [Suspect]
     Active Substance: DUPILUMAB
     Dosage: 300 MG, QOW
     Route: 058
     Dates: start: 20170622
  3. FOLIC ACID. [Concomitant]
     Active Substance: FOLIC ACID
  4. CLOBETASOL [Concomitant]
     Active Substance: CLOBETASOL
  5. DULERA [Concomitant]
     Active Substance: FORMOTEROL FUMARATE DIHYDRATE\MOMETASONE FUROATE
  6. FLUTICASONE. [Concomitant]
     Active Substance: FLUTICASONE
  7. ALCLOMETASONE [Concomitant]
     Active Substance: ALCLOMETASONE
  8. MUPIROCIN. [Concomitant]
     Active Substance: MUPIROCIN
  9. DUPIXENT [Suspect]
     Active Substance: DUPILUMAB
     Indication: DERMATITIS ATOPIC
     Dosage: 300 MG, QOW
     Route: 058
     Dates: start: 20170619
  10. METHOTREXATE. [Concomitant]
     Active Substance: METHOTREXATE
  11. DULOXETINE. [Concomitant]
     Active Substance: DULOXETINE
  12. EPIPEN [Concomitant]
     Active Substance: EPINEPHRINE
  13. FEXOFENADINE [Concomitant]
     Active Substance: FEXOFENADINE\FEXOFENADINE HYDROCHLORIDE
  14. HYDROCHLOROTH [Concomitant]
     Active Substance: HYDROCHLOROTHIAZIDE
  15. DICLOFENAC [Concomitant]
     Active Substance: DICLOFENAC
  16. CYMBALTA [Concomitant]
     Active Substance: DULOXETINE HYDROCHLORIDE
  17. LISINOPRIL. [Concomitant]
     Active Substance: LISINOPRIL
  18. PREDNISONE. [Concomitant]
     Active Substance: PREDNISONE
  19. PROAIR HFA [Concomitant]
     Active Substance: ALBUTEROL SULFATE
  20. ADDERALL [Concomitant]
     Active Substance: AMPHETAMINE ASPARTATE\AMPHETAMINE SULFATE\DEXTROAMPHETAMINE SACCHARATE\DEXTROAMPHETAMINE SULFATE

REACTIONS (1)
  - Eczema [Not Recovered/Not Resolved]
